FAERS Safety Report 8766286 (Version 1)
Quarter: 2012Q4

REPORT INFORMATION
  Report Type: 
  Country: US (occurrence: US)
  Receive Date: 20120904
  Receipt Date: 20120904
  Transmission Date: 20130627
  Serious: No
  Sender: FDA-Public Use
  Company Number: US-AMGEN-USASP2012052508

PATIENT
  Age: 48 Year
  Sex: Female
  Weight: 63.1 kg

DRUGS (5)
  1. ENBREL [Suspect]
     Indication: RHEUMATOID ARTHRITIS
     Dosage: 50 mg, qwk
     Route: 058
     Dates: start: 201001
  2. TRAZODONE [Concomitant]
     Indication: SLEEP DISORDER
     Dosage: 50 mg, qhs
     Route: 048
  3. SAVELLA [Concomitant]
     Indication: FIBROMYALGIA
     Dosage: 50 mg, bid
     Route: 048
  4. CYMBALTA [Concomitant]
     Indication: FIBROMYALGIA
     Dosage: 30 mg, qd
     Route: 048
  5. TRAMADOL [Concomitant]
     Indication: FIBROMYALGIA
     Dosage: 50 mg, prn
     Route: 048

REACTIONS (8)
  - Laceration [Recovered/Resolved]
  - Inappropriate schedule of drug administration [Recovered/Resolved]
  - Oedema peripheral [Recovered/Resolved]
  - Erythema [Recovered/Resolved]
  - Contusion [Recovered/Resolved]
  - Tenderness [Recovered/Resolved]
  - Drug administered at inappropriate site [Recovered/Resolved]
  - Injection site pain [Recovered/Resolved]
